FAERS Safety Report 17302102 (Version 1)
Quarter: 2020Q1

REPORT INFORMATION
  Report Type: Spontaneous
  Country: US (occurrence: US)
  Receive Date: 20200122
  Receipt Date: 20200122
  Transmission Date: 20200409
  Serious: No
  Sender: FDA-Public Use
  Company Number: US-ABBVIE-19K-163-3192964-00

PATIENT

DRUGS (2)
  1. ORILISSA [Suspect]
     Active Substance: ELAGOLIX SODIUM
     Indication: ENDOMETRIOSIS
     Route: 048
  2. ORILISSA [Suspect]
     Active Substance: ELAGOLIX SODIUM
     Route: 048

REACTIONS (9)
  - Hot flush [Unknown]
  - Fatigue [Unknown]
  - Paraesthesia [Unknown]
  - Limb discomfort [Unknown]
  - Asthenia [Unknown]
  - Arthralgia [Unknown]
  - Eye movement disorder [Unknown]
  - Insomnia [Unknown]
  - Dizziness [Unknown]
